FAERS Safety Report 10416217 (Version 3)
Quarter: 2014Q3

REPORT INFORMATION
  Report Type: Report from Study
  Country: FR (occurrence: FR)
  Receive Date: 20140828
  Receipt Date: 20140926
  Transmission Date: 20150326
  Serious: Yes (Hospitalization, Other)
  Sender: FDA-Public Use
  Company Number: FR-RB PHARMACEUTICALS LIMITED-RB-70845-2014

PATIENT
  Age: 47 Year
  Sex: Male

DRUGS (3)
  1. SUBOXONE [Suspect]
     Active Substance: BUPRENORPHINE HYDROCHLORIDE\NALOXONE HYDROCHLORIDE
     Indication: DRUG DEPENDENCE
     Dosage: UNKNOWN
     Route: 042
  2. SUBOXONE [Suspect]
     Active Substance: BUPRENORPHINE HYDROCHLORIDE\NALOXONE HYDROCHLORIDE
     Dosage: 4 MG DAILY
     Route: 042
  3. SUBUTEX [Suspect]
     Active Substance: BUPRENORPHINE HYDROCHLORIDE
     Indication: DRUG DEPENDENCE
     Dosage: UNK
     Route: 042

REACTIONS (11)
  - Mitral valve incompetence [Unknown]
  - Intentional product misuse [Unknown]
  - Subacute endocarditis [Unknown]
  - Pancytopenia [Unknown]
  - Haematoma [Unknown]
  - Hepatosplenomegaly [None]
  - Staphylococcus test positive [None]
  - Cardiac disorder [None]
  - Cholestasis [Unknown]
  - Hepatocellular injury [Unknown]
  - Aspiration [None]

NARRATIVE: CASE EVENT DATE: 2014
